FAERS Safety Report 4704578-X (Version None)
Quarter: 2005Q2

REPORT INFORMATION
  Report Type: 
  Country: None (occurrence: None)
  Receive Date: 20050629
  Receipt Date: 20050613
  Transmission Date: 20051028
  Serious: Yes (Other)
  Sender: FDA-Public Use
  Company Number: 2005US000757

PATIENT
  Age: 35 Year
  Sex: Male

DRUGS (15)
  1. AMBISOME [Suspect]
     Indication: FUNGAL INFECTION
     Dosage: 6.00 MG/KG, UID/QD
     Dates: start: 20050509, end: 20050518
  2. AMBISOME [Suspect]
     Indication: FUNGAL INFECTION
     Dosage: 6.00 MG/KG, UID/QD
     Dates: start: 20050525
  3. POSACONAZOLE (SCH 56592) [Suspect]
     Indication: FUNGAL INFECTION
     Dosage: SEE IMAGE, ORAL
     Route: 048
     Dates: start: 20050513, end: 20050518
  4. POSACONAZOLE (SCH 56592) [Suspect]
     Indication: FUNGAL INFECTION
     Dosage: SEE IMAGE, ORAL
     Route: 048
     Dates: start: 20050531
  5. - [Suspect]
     Indication: DEPRESSION
     Dosage: 100.00  MG
     Dates: start: 20050515, end: 20050515
  6. FLUOXETINE [Suspect]
     Indication: DEPRESSION
     Dosage: 20.00 MG
     Dates: start: 20050426, end: 20050518
  7. ACETAMINOPHEN [Suspect]
     Indication: PYREXIA
     Dosage: PRN, IV NOS
     Route: 042
     Dates: start: 20050503, end: 20050518
  8. GLIVEC (IMATINIB MESILATE) [Suspect]
     Dosage: MG
     Dates: start: 20050504, end: 20050518
  9. OMEPRAZOLE [Suspect]
     Dosage: 20.00 MG
     Dates: start: 20050501
  10. VORICONAZOLE (VORICONAZOLE) [Concomitant]
  11. CASPOFUNGIN (CASPOFUNGIN) [Concomitant]
  12. VINCRISTINE [Concomitant]
  13. DAUNORUBICIN (DAUNORUBICIN) [Concomitant]
  14. CYTARABINE [Concomitant]
  15. METHOTREXATE [Concomitant]

REACTIONS (22)
  - COLLAPSE OF LUNG [None]
  - DISCOMFORT [None]
  - ENDOCARDITIS [None]
  - FUNGAL INFECTION [None]
  - GRANULOCYTOPENIA [None]
  - HEPATITIS TOXIC [None]
  - ILEUS PARALYTIC [None]
  - LUNG INFILTRATION [None]
  - MITRAL VALVE INCOMPETENCE [None]
  - MUCORMYCOSIS [None]
  - MYELOPATHY [None]
  - NAUSEA [None]
  - NERVOUS SYSTEM DISORDER [None]
  - PARAPLEGIA [None]
  - PHLEBOTHROMBOSIS [None]
  - PLEURAL EFFUSION [None]
  - PROTHROMBIN TIME ABNORMAL [None]
  - PYREXIA [None]
  - SEPTIC EMBOLUS [None]
  - SPLENIC INFARCTION [None]
  - THYROID NEOPLASM [None]
  - VIRAL INFECTION [None]
